FAERS Safety Report 5506835-6 (Version None)
Quarter: 2007Q4

REPORT INFORMATION
  Report Type: 
  Country: None (occurrence: None)
  Receive Date: 20071105
  Receipt Date: 20071031
  Transmission Date: 20080405
  Serious: Yes (Other)
  Sender: FDA-Public Use
  Company Number: US-SHR-US-2007-041280

PATIENT
  Age: 31 Year
  Sex: Female
  Weight: 101 kg

DRUGS (2)
  1. MIRENA [Suspect]
     Dosage: 20 A?G/DAY, CONT
     Route: 015
     Dates: start: 20070701
  2. AMBIEN [Concomitant]

REACTIONS (4)
  - ABDOMINAL PAIN [None]
  - DYSPAREUNIA [None]
  - ENDOMETRIOSIS [None]
  - MENORRHAGIA [None]
